FAERS Safety Report 13060341 (Version 4)
Quarter: 2017Q1

REPORT INFORMATION
  Report Type: Spontaneous
  Country: US (occurrence: US)
  Receive Date: 20161223
  Receipt Date: 20170329
  Transmission Date: 20170428
  Serious: Yes (Hospitalization)
  Sender: FDA-Public Use
  Company Number: US-ALLERGAN-1681510US

PATIENT
  Age: 29 Year
  Sex: Female
  Weight: 52.15 kg

DRUGS (2)
  1. BOTOX COSMETIC [Suspect]
     Active Substance: ONABOTULINUMTOXINA
     Indication: SKIN WRINKLING
     Dosage: 12.5 UNITS, SINGLE
     Route: 030
     Dates: start: 20161129, end: 20161129
  2. BOTOX COSMETIC [Suspect]
     Active Substance: ONABOTULINUMTOXINA
     Indication: SKIN WRINKLING
     Dosage: 2.5 UNITS, SINGLE
     Route: 030
     Dates: start: 20161129, end: 20161129

REACTIONS (14)
  - Muscle spasms [Recovering/Resolving]
  - Loss of bladder sensation [Recovering/Resolving]
  - Musculoskeletal stiffness [Recovered/Resolved]
  - Off label use [Unknown]
  - Headache [Recovering/Resolving]
  - Decreased appetite [Recovering/Resolving]
  - Neurogenic bowel [Recovering/Resolving]
  - Muscular weakness [Recovering/Resolving]
  - Dysphagia [Recovering/Resolving]
  - Weight decreased [Recovering/Resolving]
  - Muscle twitching [Recovering/Resolving]
  - Dysphonia [Recovering/Resolving]
  - Walking disability [Recovered/Resolved]
  - Nausea [Recovering/Resolving]

NARRATIVE: CASE EVENT DATE: 20161129
